FAERS Safety Report 5033158-4 (Version None)
Quarter: 2006Q2

REPORT INFORMATION
  Report Type: 
  Country: None (occurrence: None)
  Receive Date: 20060511
  Receipt Date: 20060214
  Transmission Date: 20061013
  Serious: No
  Sender: FDA-Public Use
  Company Number: 200611581US

PATIENT
  Age: 16 Year
  Sex: Female
  Weight: 57.4 kg

DRUGS (2)
  1. INSULIN GLULISINE (APIDRA) [Suspect]
     Indication: DIABETES MELLITUS INSULIN-DEPENDENT
     Dates: start: 20060204, end: 20060205
  2. ZYRTEC [Concomitant]

REACTIONS (1)
  - HYPOGLYCAEMIA [None]
